FAERS Safety Report 15302873 (Version 1)
Quarter: 2018Q3

REPORT INFORMATION
  Report Type: Spontaneous
  Country: DE (occurrence: FR)
  Receive Date: 20180821
  Receipt Date: 20180821
  Transmission Date: 20181010
  Serious: Yes (Congenital Anomaly)
  Sender: FDA-Public Use
  Company Number: FR-MERZ NORTH AMERICA, INC.-18MRZ-00431

PATIENT
  Sex: Male

DRUGS (2)
  1. FOLIC ACID. [Concomitant]
     Active Substance: FOLIC ACID
     Route: 064
  2. ASCLERA [Suspect]
     Active Substance: POLIDOCANOL
     Indication: MATERNAL EXPOSURE DURING PREGNANCY
     Dosage: AETOXISCLEROL TAMPONNE  (LAUROMACROGOL 400)   EXPOSURE IN UTERO FOR PATIENT, AFTER A 42?YEAR?OLD FEM
     Route: 064

REACTIONS (2)
  - Polydactyly [Recovered/Resolved]
  - Foetal exposure during pregnancy [Unknown]

NARRATIVE: CASE EVENT DATE: 2016
